FAERS Safety Report 4963784-X (Version None)
Quarter: 2006Q1

REPORT INFORMATION
  Report Type: 
  Country: None (occurrence: None)
  Receive Date: 20060330
  Receipt Date: 20060317
  Transmission Date: 20060701
  Serious: Yes (Other)
  Sender: FDA-Public Use
  Company Number: 2006038320

PATIENT
  Sex: Male
  Weight: 129.7287 kg

DRUGS (5)
  1. VIAGRA [Suspect]
     Indication: ERECTILE DYSFUNCTION
     Dosage: 50 MG (50 MG, AS NECESSARY), ORAL
     Route: 048
  2. BENICAR [Suspect]
     Indication: HYPERTENSION
  3. INSULIN (INSULIN) [Concomitant]
  4. MOTRIN [Concomitant]
  5. LORTAB [Concomitant]

REACTIONS (6)
  - DIABETIC FOOT INFECTION [None]
  - DISORIENTATION [None]
  - DRUG EFFECT DECREASED [None]
  - HYPERTENSION [None]
  - SKIN EXFOLIATION [None]
  - TOE AMPUTATION [None]
